FAERS Safety Report 5992247-8 (Version None)
Quarter: 2008Q4

REPORT INFORMATION
  Report Type: 
  Country: None (occurrence: None)
  Receive Date: 20081202
  Receipt Date: 20080702
  Transmission Date: 20090506
  Serious: Yes (Other)
  Sender: FDA-Public Use
  Company Number: WAES 0807USA00773

PATIENT
  Age: 62 Year
  Sex: Female

DRUGS (3)
  1. FOSAMAX [Suspect]
     Indication: OSTEOPOROSIS
     Dosage: 70 MG/WKY/PO
     Route: 048
     Dates: start: 20030701, end: 20060501
  2. ZYPREXA [Concomitant]
  3. TRAZODONE HYDROCHLORIDE [Concomitant]

REACTIONS (6)
  - CELLULITIS [None]
  - GINGIVAL INFECTION [None]
  - JAW FRACTURE [None]
  - OSTEOMYELITIS CHRONIC [None]
  - OSTEONECROSIS [None]
  - WEIGHT DECREASED [None]
